FAERS Safety Report 21472237 (Version 3)
Quarter: 2022Q4

REPORT INFORMATION
  Report Type: Spontaneous
  Country: US (occurrence: US)
  Receive Date: 20221018
  Receipt Date: 20221222
  Transmission Date: 20230112
  Serious: Yes (Other)
  Sender: FDA-Public Use
  Company Number: US-BRISTOL-MYERS SQUIBB COMPANY-2022-121528

PATIENT
  Age: 86 Year
  Sex: Male

DRUGS (1)
  1. POMALYST [Suspect]
     Active Substance: POMALIDOMIDE
     Indication: Plasma cell myeloma
     Dosage: TAKE 1 WHOLE CAPSULE BY MOUTH WITH WATER  AT THE SAME TIME EVERY DAY ON DAYS 1-21 OF EACH CHEMO CYCL
     Route: 048
     Dates: start: 20221013

REACTIONS (2)
  - Bone cancer [Unknown]
  - Urinary tract infection [Unknown]
